FAERS Safety Report 24200604 (Version 1)
Quarter: 2024Q3

REPORT INFORMATION
  Report Type: Spontaneous
  Country: GB (occurrence: GB)
  Receive Date: 20240812
  Receipt Date: 20240812
  Transmission Date: 20241017
  Serious: Yes (Other)
  Sender: TEVA
  Company Number: None

PATIENT
  Age: 71 Year
  Sex: Male
  Weight: 71 kg

DRUGS (2)
  1. LENALIDOMIDE [Suspect]
     Active Substance: LENALIDOMIDE
     Indication: Plasma cell myeloma
     Route: 065
     Dates: start: 20220714
  2. IXAZOMIB [Concomitant]
     Active Substance: IXAZOMIB
     Indication: Plasma cell myeloma
     Dates: start: 20220714

REACTIONS (1)
  - Malignant melanoma [Not Recovered/Not Resolved]

NARRATIVE: CASE EVENT DATE: 20240702
